FAERS Safety Report 4800058-1 (Version None)
Quarter: 2005Q4

REPORT INFORMATION
  Report Type: 
  Country: None (occurrence: None)
  Receive Date: 20051017
  Receipt Date: 20051006
  Transmission Date: 20060501
  Serious: Yes (Other)
  Sender: FDA-Public Use
  Company Number: US-JNJFOC-20041103808

PATIENT
  Sex: Male
  Weight: 67.13 kg

DRUGS (2)
  1. REMICADE [Suspect]
     Route: 042
  2. REMICADE [Suspect]
     Indication: CROHN'S DISEASE
     Route: 042

REACTIONS (4)
  - CONDYLOMA ACUMINATUM [None]
  - DERMATITIS [None]
  - HYPEREOSINOPHILIC SYNDROME [None]
  - MELANOCYTIC NAEVUS [None]
